FAERS Safety Report 12859521 (Version 5)
Quarter: 2017Q2

REPORT INFORMATION
  Report Type: Report from Study
  Country: SE (occurrence: SE)
  Receive Date: 20161018
  Receipt Date: 20170410
  Transmission Date: 20170830
  Serious: Yes (Hospitalization, Other)
  Sender: FDA-Public Use
  Company Number: SE-BRISTOL-MYERS SQUIBB COMPANY-BMS-2016-085259

PATIENT
  Age: 75 Year
  Sex: Female
  Weight: 61.5 kg

DRUGS (12)
  1. PARACETAMOL [Concomitant]
     Active Substance: ACETAMINOPHEN
     Indication: PAIN
     Dosage: 500 MG, QD
     Route: 048
     Dates: start: 20160908
  2. CYANOCOBALAMIN. [Concomitant]
     Active Substance: CYANOCOBALAMIN
     Indication: VITAMIN B12 DEFICIENCY
     Dosage: 1 MG, UNK
     Route: 048
     Dates: start: 2009
  3. CARBOMER [Concomitant]
     Active Substance: CARBOMER
     Indication: DRY EYE
     Dosage: 8 MG, QD
     Route: 050
     Dates: start: 20160902
  4. DOXYCYCLINE. [Concomitant]
     Active Substance: DOXYCYCLINE
     Indication: UPPER RESPIRATORY TRACT INFECTION
     Dosage: 100 MG, QD
     Route: 048
     Dates: start: 20160928, end: 20161006
  5. CIPROFLOXACIN. [Concomitant]
     Active Substance: CIPROFLOXACIN
     Indication: C-REACTIVE PROTEIN
     Route: 065
  6. ESTRADIOL. [Concomitant]
     Active Substance: ESTRADIOL
     Indication: MUCOSAL DRYNESS
     Dosage: 10 ?G, QD
     Route: 067
     Dates: start: 20160902
  7. DALTEPARIN [Concomitant]
     Active Substance: DALTEPARIN
     Indication: THROMBOSIS
     Dosage: 12500 IU, UNK
     Route: 058
     Dates: start: 20160909
  8. INSULIN ASPART [Concomitant]
     Active Substance: INSULIN ASPART
     Indication: DIABETES MELLITUS
     Dosage: 4.000 IU, UNK
     Route: 058
     Dates: start: 20160908
  9. NIVOLUMAB [Suspect]
     Active Substance: NIVOLUMAB
     Indication: MALIGNANT MELANOMA
     Dosage: 60 MG, UNK
     Route: 042
     Dates: start: 20160915, end: 20161010
  10. PREDNISOLONE. [Concomitant]
     Active Substance: PREDNISOLONE
     Indication: FACIAL PARALYSIS
     Dosage: 1 DF, UNK
     Route: 048
     Dates: start: 20160902
  11. IPILIMUMAB [Suspect]
     Active Substance: IPILIMUMAB
     Indication: MALIGNANT MELANOMA
     Dosage: 180 MG, UNK
     Route: 042
     Dates: start: 20160915, end: 20161010
  12. CIPROFLOXACIN. [Concomitant]
     Active Substance: CIPROFLOXACIN
     Indication: PYREXIA
     Dosage: 1000 MG, QD
     Route: 048
     Dates: start: 20160920, end: 20160926

REACTIONS (1)
  - Autoimmune neuropathy [Unknown]

NARRATIVE: CASE EVENT DATE: 20161003
